FAERS Safety Report 16148342 (Version 1)
Quarter: 2019Q2

REPORT INFORMATION
  Report Type: Spontaneous
  Country: US (occurrence: US)
  Receive Date: 20190402
  Receipt Date: 20190402
  Transmission Date: 20190711
  Serious: Yes (Other)
  Sender: FDA-Public Use
  Company Number: US-OTSUKA-2019_009332

PATIENT
  Age: 75 Year
  Sex: Female

DRUGS (2)
  1. ABILIFY [Suspect]
     Active Substance: ARIPIPRAZOLE
     Indication: DEPRESSION
  2. ABILIFY [Suspect]
     Active Substance: ARIPIPRAZOLE
     Indication: ANXIETY
     Dosage: 1 DF, QD
     Route: 048

REACTIONS (6)
  - Adverse drug reaction [Unknown]
  - Back pain [Unknown]
  - Spinal stenosis [Unknown]
  - Feeling abnormal [Unknown]
  - Cognitive disorder [Unknown]
  - Product use in unapproved indication [Unknown]
